FAERS Safety Report 17476237 (Version 1)
Quarter: 2020Q1

REPORT INFORMATION
  Report Type: Report from Study
  Country: KR (occurrence: KR)
  Receive Date: 20200228
  Receipt Date: 20200228
  Transmission Date: 20200409
  Serious: Yes (Other)
  Sender: FDA-Public Use
  Company Number: KR-JNJFOC-20190926003

PATIENT

DRUGS (1)
  1. STELARA [Suspect]
     Active Substance: USTEKINUMAB
     Indication: PSORIASIS
     Route: 058

REACTIONS (24)
  - Pelvic inflammatory disease [Unknown]
  - Arthralgia [Unknown]
  - Fatigue [Unknown]
  - Back pain [Unknown]
  - Oropharyngeal pain [Unknown]
  - Conjunctivitis allergic [Unknown]
  - Headache [Unknown]
  - Cough [Unknown]
  - Rhinitis allergic [Unknown]
  - Tinea pedis [Unknown]
  - Psoriatic arthropathy [Unknown]
  - Nasopharyngitis [Unknown]
  - Diarrhoea [Unknown]
  - Pruritus [Unknown]
  - Prostatitis [Unknown]
  - Upper respiratory tract infection [Unknown]
  - Rotator cuff syndrome [Unknown]
  - Rhinorrhoea [Unknown]
  - Eczema [Unknown]
  - Urticaria [Unknown]
  - Acne [Unknown]
  - Ligament sprain [Unknown]
  - Cervical dysplasia [Unknown]
  - Herpes zoster [Unknown]
